FAERS Safety Report 23578375 (Version 2)
Quarter: 2024Q1

REPORT INFORMATION
  Report Type: Spontaneous
  Country: US (occurrence: US)
  Receive Date: 20240229
  Receipt Date: 20240320
  Transmission Date: 20240409
  Serious: Yes (Other)
  Sender: FDA-Public Use
  Company Number: US-BRISTOL-MYERS SQUIBB COMPANY-2024-032216

PATIENT
  Age: 59 Year
  Sex: Female

DRUGS (2)
  1. REVLIMID [Suspect]
     Active Substance: LENALIDOMIDE
     Indication: Plasma cell myeloma
     Route: 048
     Dates: start: 202401
  2. REVLIMID [Suspect]
     Active Substance: LENALIDOMIDE
     Indication: Plasmacytoma
     Dosage: 15 MG, 1 CAPSULE BY MOUTH 1 TIME A DAY FOR 14 DAYS ON AND 7 DAYS OFF
     Route: 048

REACTIONS (6)
  - Thrombosis [Unknown]
  - Fatigue [Unknown]
  - Off label use [Unknown]
  - Memory impairment [Unknown]
  - Pain [Unknown]
  - Nausea [Unknown]
